FAERS Safety Report 11616996 (Version 4)
Quarter: 2017Q1

REPORT INFORMATION
  Report Type: Spontaneous
  Country: US (occurrence: US)
  Receive Date: 20151009
  Receipt Date: 20170103
  Transmission Date: 20170428
  Serious: Yes (Other)
  Sender: FDA-Public Use
  Company Number: US-BAYER-2015-435174

PATIENT
  Age: 63 Year
  Sex: Female
  Weight: 58.96 kg

DRUGS (6)
  1. AVELOX [Suspect]
     Active Substance: MOXIFLOXACIN HYDROCHLORIDE
     Indication: SINUSITIS
     Dosage: 400 MG, UNK
     Dates: start: 20090415, end: 20090425
  2. AVELOX [Suspect]
     Active Substance: MOXIFLOXACIN HYDROCHLORIDE
     Indication: SINUSITIS
     Dosage: 400 MG, UNK
     Dates: start: 20100518, end: 20100528
  3. CLONIDINE. [Concomitant]
     Active Substance: CLONIDINE
  4. CLOPIDOGREL [Concomitant]
     Active Substance: CLOPIDOGREL BISULFATE
     Dosage: 600 MG, UNK
  5. ESTROGEN NOS [Concomitant]
     Active Substance: ESTROGENS
     Indication: SINUSITIS
     Dosage: UNK
  6. ASPIRIN. [Concomitant]
     Active Substance: ASPIRIN

REACTIONS (11)
  - Arthralgia [None]
  - Neuropathy peripheral [None]
  - Asthenia [None]
  - Hypoaesthesia [None]
  - Pain [None]
  - Injury [None]
  - Emotional distress [None]
  - Anxiety [None]
  - Anxiety [None]
  - Myalgia [None]
  - Anhedonia [None]

NARRATIVE: CASE EVENT DATE: 2016
